FAERS Safety Report 14656439 (Version 1)
Quarter: 2018Q1

REPORT INFORMATION
  Report Type: Report from Study
  Country: US (occurrence: US)
  Receive Date: 20180319
  Receipt Date: 20180319
  Transmission Date: 20180509
  Serious: Yes (Other)
  Sender: FDA-Public Use
  Company Number: US-UCBSA-2018010493

PATIENT

DRUGS (3)
  1. LEVETIRACETAM. [Suspect]
     Active Substance: LEVETIRACETAM
     Indication: PRODUCT USED FOR UNKNOWN INDICATION
     Dosage: UNSPECIFIED DOSE
  2. DILANTIN [Suspect]
     Active Substance: PHENYTOIN
     Indication: PRODUCT USED FOR UNKNOWN INDICATION
     Dosage: UNK
  3. LEVETIRACETAM. [Suspect]
     Active Substance: LEVETIRACETAM
     Dosage: REDUCED TO 1000 MG PER DAY

REACTIONS (8)
  - Myoclonus [Unknown]
  - Tremor [Unknown]
  - Simple partial seizures [Unknown]
  - Asthenia [Unknown]
  - Cognitive disorder [Unknown]
  - Generalised tonic-clonic seizure [Unknown]
  - Drug level increased [Recovered/Resolved]
  - Stupor [Unknown]
